FAERS Safety Report 10944615 (Version 1)
Quarter: 2015Q1

REPORT INFORMATION
  Report Type: Spontaneous
  Country: US (occurrence: US)
  Receive Date: 20150323
  Receipt Date: 20150323
  Transmission Date: 20150721
  Serious: No
  Sender: FDA-Public Use
  Company Number: US-PFIZER INC-2015094908

PATIENT
  Age: 61 Year
  Sex: Female

DRUGS (1)
  1. LIPITOR [Suspect]
     Active Substance: ATORVASTATIN CALCIUM
     Dosage: UNK

REACTIONS (7)
  - Cough [Unknown]
  - Rash [Unknown]
  - Arthralgia [Unknown]
  - Drug hypersensitivity [Unknown]
  - Myalgia [Unknown]
  - Pain [Unknown]
  - Drug intolerance [Unknown]

NARRATIVE: CASE EVENT DATE: 20120323
